FAERS Safety Report 5259919-4 (Version None)
Quarter: 2007Q1

REPORT INFORMATION
  Report Type: 
  Country: None (occurrence: None)
  Receive Date: 20070307
  Receipt Date: 20070222
  Transmission Date: 20070707
  Serious: Yes (Hospitalization)
  Sender: FDA-Public Use
  Company Number: PAR_1093_2006

PATIENT
  Age: 69 Year
  Sex: Female

DRUGS (14)
  1. IBUPROFEN [Suspect]
     Dosage: DF UNK PO
     Route: 048
     Dates: start: 20060728, end: 20060730
  2. ALEVE [Suspect]
     Indication: ARTHRALGIA
     Dosage: 220 MG BID PO
     Route: 048
     Dates: start: 20060712, end: 20060723
  3. ALEVE [Suspect]
     Indication: INFLAMMATION
     Dosage: 220 MG BID PO
     Route: 048
     Dates: start: 20060712, end: 20060723
  4. ALEVE [Suspect]
     Indication: ARTHRALGIA
     Dosage: 220 MG QDAY PO
     Route: 048
     Dates: start: 20060924
  5. ALEVE [Suspect]
     Indication: INFLAMMATION
     Dosage: 220 MG QDAY PO
     Route: 048
     Dates: start: 20060924
  6. KEPPRA [Concomitant]
  7. FOSAMAX [Concomitant]
  8. EVISTA [Concomitant]
  9. CELEXA [Concomitant]
  10. MULTIVITAMIN /00831701/ [Concomitant]
  11. CALTRATE +D [Concomitant]
  12. ASPIRIN [Concomitant]
  13. GAS X [Concomitant]
  14. CALCIUM [Concomitant]

REACTIONS (16)
  - CONFUSIONAL STATE [None]
  - DEHYDRATION [None]
  - HALLUCINATION [None]
  - HEPATIC FAILURE [None]
  - HEPATOCELLULAR DAMAGE [None]
  - LEUKOCYTE VACUOLISATION [None]
  - LEUKOCYTOSIS [None]
  - LYMPHOCYTE MORPHOLOGY ABNORMAL [None]
  - LYMPHOCYTE PERCENTAGE DECREASED [None]
  - NEUTROPHIL TOXIC GRANULATION PRESENT [None]
  - NEUTROPHILIA [None]
  - NORMOCHROMIC NORMOCYTIC ANAEMIA [None]
  - RECTAL HAEMORRHAGE [None]
  - SHIFT TO THE LEFT [None]
  - URINARY TRACT INFECTION [None]
  - VIRAL INFECTION [None]
